FAERS Safety Report 5478456-5 (Version None)
Quarter: 2007Q4

REPORT INFORMATION
  Report Type: 
  Country: None (occurrence: None)
  Receive Date: 20071005
  Receipt Date: 20070925
  Transmission Date: 20080405
  Serious: Yes (Other)
  Sender: FDA-Public Use
  Company Number: GB-ROCHE-522453

PATIENT
  Age: 66 Year
  Sex: Female

DRUGS (4)
  1. BONIVA [Suspect]
     Indication: OSTEOPOROSIS
     Route: 048
     Dates: start: 20070301, end: 20070403
  2. ATORVASTATIN CALCIUM [Concomitant]
     Route: 048
  3. CLOPIDOGREL [Concomitant]
     Indication: ANGINA PECTORIS
     Route: 048
  4. OMEPRAZOLE [Concomitant]
     Indication: DYSPEPSIA
     Route: 048

REACTIONS (3)
  - EYE PAIN [None]
  - IRIDOCYCLITIS [None]
  - VISUAL ACUITY REDUCED [None]
